FAERS Safety Report 14755742 (Version 4)
Quarter: 2018Q4

REPORT INFORMATION
  Report Type: Spontaneous
  Country: US (occurrence: US)
  Receive Date: 20180413
  Receipt Date: 20181031
  Transmission Date: 20190204
  Serious: Yes (Other)
  Sender: FDA-Public Use
  Company Number: US-PFIZER INC-2018148271

PATIENT
  Age: 55 Year
  Sex: Female
  Weight: 53 kg

DRUGS (7)
  1. HYDROCODONE [Concomitant]
     Active Substance: HYDROCODONE
     Indication: BACK INJURY
     Dosage: UNK (10^S BREAK IN HALF OR TAKE ONE)
     Route: 048
     Dates: start: 1997
  2. IBRANCE [Suspect]
     Active Substance: PALBOCICLIB
     Dosage: 125 MG, CYCLIC (1 CAPSULE BY MOUTH ONCE A DAY FOR 21 DAYS WITH FOOD THEN OFF FOR 7 DAYS)
     Route: 048
     Dates: start: 20180315, end: 2018
  3. IBRANCE [Suspect]
     Active Substance: PALBOCICLIB
     Indication: BREAST CANCER FEMALE
     Dosage: 125 MG, 1X/DAY
     Route: 048
     Dates: start: 201803
  4. IBRANCE [Suspect]
     Active Substance: PALBOCICLIB
     Dosage: 125 MG, 1X/DAY (WITH FOOD)
     Route: 048
     Dates: start: 20180316, end: 201804
  5. LETROZOLE. [Concomitant]
     Active Substance: LETROZOLE
     Indication: ANTIOESTROGEN THERAPY
     Dosage: 2.5 MG, DAILY (1 TABLET BY MOUTH EVERY DAY FOR 30 DAYS)
     Route: 048
  6. XARELTO [Concomitant]
     Active Substance: RIVAROXABAN
     Indication: DEEP VEIN THROMBOSIS
     Dosage: 20 MG, 1X/DAY (AT NIGHT, TRIANGULAR PILL BY MOUTH)
     Route: 048
     Dates: start: 201801
  7. IBRANCE [Suspect]
     Active Substance: PALBOCICLIB
     Dosage: 125 MG, 1X/DAY (WITH FOOD)
     Route: 048
     Dates: start: 20180412

REACTIONS (15)
  - Vomiting [Unknown]
  - Skin disorder [Unknown]
  - Urinary tract infection [Recovering/Resolving]
  - Dyspnoea [Unknown]
  - Fatigue [Recovering/Resolving]
  - Dizziness [Not Recovered/Not Resolved]
  - Malaise [Unknown]
  - Decreased appetite [Unknown]
  - Blood sodium decreased [Unknown]
  - Nausea [Recovering/Resolving]
  - Weight increased [Unknown]
  - Escherichia infection [Recovering/Resolving]
  - Product dose omission [Unknown]
  - Feeling abnormal [Unknown]
  - Weight decreased [Unknown]

NARRATIVE: CASE EVENT DATE: 2018
